FAERS Safety Report 24875041 (Version 1)
Quarter: 2025Q1

REPORT INFORMATION
  Report Type: Other
  Country: US (occurrence: US)
  Receive Date: 20250122
  Receipt Date: 20250122
  Transmission Date: 20250409
  Serious: Yes (Other)
  Sender: EYWA PHARMA INC.
  Company Number: US-Eywa Pharma Inc.-2169540

PATIENT
  Age: 29 Year
  Sex: Female

DRUGS (1)
  1. LABETALOL HYDROCHLORIDE [Suspect]
     Active Substance: LABETALOL HYDROCHLORIDE
     Indication: Hypertension

REACTIONS (1)
  - Autoimmune hepatitis [Recovering/Resolving]
